FAERS Safety Report 8822376 (Version 1)
Quarter: 2012Q4

REPORT INFORMATION
  Report Type: 
  Country: US (occurrence: US)
  Receive Date: 20121003
  Receipt Date: 20121003
  Transmission Date: 20130627
  Serious: Yes (Life-Threatening, Hospitalization)
  Sender: FDA-Public Use
  Company Number: PHEH2012US019299

PATIENT
  Age: 79 Year
  Sex: Female
  Weight: 67 kg

DRUGS (9)
  1. AFINITOR [Suspect]
     Indication: BREAST CANCER
     Dosage: 10 mg, QD
     Route: 048
     Dates: start: 20120612, end: 20120712
  2. EXEMESTANE [Concomitant]
  3. LEVOTHYROXINE [Concomitant]
     Dosage: 50 ug
  4. LISINOPRIL [Concomitant]
     Dosage: 20 mg
  5. VITAMIN D [Concomitant]
     Dosage: 2000 units
  6. FISH OIL [Concomitant]
     Dosage: 1000 mg, QD
  7. OLIVE OIL [Concomitant]
     Dosage: 100 mg, BID
  8. MIRALAX [Concomitant]
     Dosage: twice daily
  9. VITAMIN B6 [Concomitant]
     Dosage: 100 TID

REACTIONS (2)
  - Asthenia [Recovered/Resolved]
  - Dyspnoea [Recovered/Resolved]
